FAERS Safety Report 8824659 (Version 1)
Quarter: 2012Q4

REPORT INFORMATION
  Report Type: 
  Country: BR (occurrence: BR)
  Receive Date: 20121004
  Receipt Date: 20121004
  Transmission Date: 20130627
  Serious: Yes (Death)
  Sender: FDA-Public Use
  Company Number: PHHY2012BR086865

PATIENT
  Age: 78 Year
  Sex: Male

DRUGS (14)
  1. DIOVAN [Suspect]
     Dosage: 160 mg, UNK
  2. DIOVAN [Suspect]
     Dosage: 320 mg, UNK
  3. DIOVAN AMLO FIX [Suspect]
     Indication: CEREBROVASCULAR ACCIDENT
     Dosage: 1 DF, (160/5mg) at night
     Route: 048
  4. DIOVAN AMLO FIX [Suspect]
     Dosage: 320/5 mg, UNK
  5. CRESTOR [Concomitant]
     Dosage: 5 mg, UNK
  6. ATENSINA [Concomitant]
     Dosage: 0.100 mg, UNK
  7. LIPANON [Concomitant]
     Dosage: UNK UKN, UNK
  8. SELOZOK [Concomitant]
     Dosage: 25 mg, UNK
  9. NEBILET [Concomitant]
     Dosage: 5 mg, UNK
  10. OMEPRAZOLE [Concomitant]
     Dosage: UNK UKN, UNK
  11. SYNTHROID [Concomitant]
     Dosage: UNK UKN, UNK
  12. AAS [Concomitant]
     Dosage: 1 DF, daily
     Route: 048
  13. SODIUM BICARBONATE [Concomitant]
     Indication: GOUT
     Dosage: 1 teaspoon, daily
     Route: 048
  14. VOLTAREN [Concomitant]
     Indication: GOUT
     Dosage: 50 mg, UNK

REACTIONS (2)
  - Death [Fatal]
  - Malaise [Unknown]
